FAERS Safety Report 4982132-2 (Version None)
Quarter: 2006Q2

REPORT INFORMATION
  Report Type: 
  Country: None (occurrence: None)
  Receive Date: 20060419
  Receipt Date: 20060329
  Transmission Date: 20061013
  Serious: Yes (Hospitalization, Other)
  Sender: FDA-Public Use
  Company Number: US200603007121

PATIENT
  Age: 84 Year
  Sex: Male

DRUGS (2)
  1. FORTEO [Suspect]
     Indication: OSTEOPOROSIS
  2. FORTEO [Concomitant]

REACTIONS (4)
  - GASTROINTESTINAL ULCER [None]
  - HAEMORRHAGE [None]
  - HIATUS HERNIA [None]
  - PHARMACEUTICAL PRODUCT COMPLAINT [None]
